FAERS Safety Report 5174342-9 (Version None)
Quarter: 2006Q4

REPORT INFORMATION
  Report Type: 
  Country: None (occurrence: None)
  Receive Date: 20061206
  Receipt Date: 20061130
  Transmission Date: 20070319
  Serious: Yes (Death, Life-Threatening, Other)
  Sender: FDA-Public Use
  Company Number: 163-21880-06080937

PATIENT
  Age: 76 Year
  Sex: Female

DRUGS (9)
  1. REVLIMID [Suspect]
     Indication: MYELODYSPLASTIC SYNDROME
     Dosage: 10 MG, 1 IN 1 D, ORAL
     Route: 048
     Dates: start: 20060726, end: 20060731
  2. PREMARIN [Concomitant]
  3. NYSTATIN (NYSTATIN) (SUSPENSION) [Concomitant]
  4. VICODIN [Concomitant]
  5. MORPHINE [Concomitant]
  6. SCOPOLAMINE (HYOSCINE) (POULTICE OR PATCH) [Concomitant]
  7. ZOSYN [Concomitant]
  8. ZOFRAN [Concomitant]
  9. ATIVAN [Concomitant]

REACTIONS (4)
  - ACUTE MYELOID LEUKAEMIA [None]
  - DISEASE PROGRESSION [None]
  - NEUTROPENIA [None]
  - THROMBOCYTOPENIA [None]
